FAERS Safety Report 8421742-7 (Version None)
Quarter: 2012Q2

REPORT INFORMATION
  Report Type: 
  Country: None (occurrence: None)
  Receive Date: 20120323
  Receipt Date: 20111216
  Transmission Date: 20120825
  Serious: Yes (Other)
  Sender: FDA-Public Use
  Company Number: 163-21880-11122360

PATIENT
  Age: 76 Year
  Sex: Female
  Weight: 63.5036 kg

DRUGS (25)
  1. CALCIUM / D (CALCIUM D3 ^STADA^) [Concomitant]
  2. ZOMETA [Concomitant]
  3. ANTIBIOTICS (ANTIBIOTICS) [Concomitant]
  4. SYNTHROID [Concomitant]
  5. VITAMIN D [Concomitant]
  6. ALIGN (BIFIDOBACTERIUM INFANTIS) [Concomitant]
  7. MULTIVITAMIN [Concomitant]
  8. ASPIRIN [Concomitant]
  9. XANAX [Concomitant]
  10. B COMPLEX ELX [Concomitant]
  11. SINGULAIR [Concomitant]
  12. ZITHROMAX [Concomitant]
  13. REVLIMID [Suspect]
     Indication: MULTIPLE MYELOMA
     Dosage: 25 MG, 21/7, PO
     Route: 048
     Dates: start: 20110606
  14. NEURONTIN [Concomitant]
  15. ZOLOFT [Concomitant]
  16. MUCINEX [Concomitant]
  17. STEROID (STEROID ANTIBACTERIALS) [Concomitant]
  18. METAMUCIL (METAMUCIL ^PROCTER + GAMBLE^) [Concomitant]
  19. DICYCLOMINE [Concomitant]
  20. FLAGYL [Concomitant]
  21. FISH OIL (FISH OIL) [Concomitant]
  22. DEXAMETHASONE [Concomitant]
  23. LOPRESSOR [Concomitant]
  24. MEDICATE MOUTHWASH (ALL OTHER THERAPEUTIC PRODUCTS) [Concomitant]
  25. ACTIVA (DICLOFENAC SODIUM) [Concomitant]

REACTIONS (1)
  - DIVERTICULITIS [None]
